FAERS Safety Report 5952344-X (Version None)
Quarter: 2008Q4

REPORT INFORMATION
  Report Type: 
  Country: None (occurrence: None)
  Receive Date: 20081113
  Receipt Date: 20081107
  Transmission Date: 20090506
  Serious: Yes (Hospitalization)
  Sender: FDA-Public Use
  Company Number: US-WATSON-2008-06598

PATIENT
  Age: 67 Year
  Sex: Female

DRUGS (2)
  1. TRIAMCINOLONE DIACETATE [Suspect]
     Indication: PAIN
     Dosage: 80 MG, UNK
     Route: 008
  2. BUPIVACAINE [Concomitant]
     Indication: PAIN
     Dosage: 2 ML, OF 0.25%
     Route: 008

REACTIONS (1)
  - APHASIA [None]
